FAERS Safety Report 17670722 (Version 3)
Quarter: 2020Q2

REPORT INFORMATION
  Report Type: Spontaneous
  Country: US (occurrence: US)
  Receive Date: 20200415
  Receipt Date: 20200528
  Transmission Date: 20200713
  Serious: No
  Sender: FDA-Public Use
  Company Number: US-SA-2020SA096126

PATIENT
  Age: 65 Year
  Sex: Female

DRUGS (1)
  1. DUPIXENT [Suspect]
     Active Substance: DUPILUMAB
     Indication: PRODUCT USED FOR UNKNOWN INDICATION
     Dosage: 300 MG, QOW
     Route: 058
     Dates: start: 202003

REACTIONS (6)
  - Dry skin [Unknown]
  - Condition aggravated [Unknown]
  - Rash [Unknown]
  - Pruritus [Unknown]
  - Skin disorder [Unknown]
  - Rash macular [Unknown]

NARRATIVE: CASE EVENT DATE: 2020
